FAERS Safety Report 14801194 (Version 1)
Quarter: 2018Q2

REPORT INFORMATION
  Report Type: Spontaneous
  Country: US (occurrence: US)
  Receive Date: 20180424
  Receipt Date: 20180424
  Transmission Date: 20180711
  Serious: Yes (Hospitalization)
  Sender: FDA-Public Use
  Company Number: US-TEVA-2018-US-884937

PATIENT
  Age: 56 Year
  Sex: Male

DRUGS (6)
  1. AMOXICILLIN W/CLAVULANIC ACID [Suspect]
     Active Substance: AMOXICILLIN\CLAVULANIC ACID
     Dosage: DAY -13 TO -9.
     Route: 065
  2. CEFTRIAXONE. [Suspect]
     Active Substance: CEFTRIAXONE
     Dosage: DAY -30 TO -27
     Route: 065
  3. METRONIDAZOLE. [Suspect]
     Active Substance: METRONIDAZOLE
     Indication: PYELONEPHRITIS
     Dosage: DAY -17 TO -14.
     Route: 065
  4. PIPERACILLIN/TAZOBACTAM [Suspect]
     Active Substance: PIPERACILLIN SODIUM\TAZOBACTAM SODIUM
     Dosage: DAY -17 TO -14.
     Route: 065
  5. CIPROFLOXACIN. [Suspect]
     Active Substance: CIPROFLOXACIN
     Indication: PYELONEPHRITIS
     Route: 065
  6. CEFALEXIN [Suspect]
     Active Substance: CEPHALEXIN
     Dosage: DAY -26 TO -20 AND DAY-13.
     Route: 065

REACTIONS (3)
  - Mycetoma mycotic [Recovered/Resolved]
  - Mucormycosis [Recovering/Resolving]
  - Hydronephrosis [Recovering/Resolving]
